FAERS Safety Report 6312598-7 (Version None)
Quarter: 2009Q3

REPORT INFORMATION
  Report Type: 
  Country: None (occurrence: None)
  Receive Date: 20090813
  Receipt Date: 20090804
  Transmission Date: 20100115
  Serious: Yes (Hospitalization)
  Sender: FDA-Public Use
  Company Number: 2009AL002252

PATIENT
  Age: 47 Year
  Sex: Male

DRUGS (39)
  1. DIGOXIN [Suspect]
     Dosage: 0.25MG, DAILY, PO
     Route: 048
     Dates: start: 20040101, end: 20080101
  2. GLUCOPHAGE [Concomitant]
  3. GLYBURIDE [Concomitant]
  4. COREG [Concomitant]
  5. ALDACTONE [Concomitant]
  6. MONOPRIL [Concomitant]
  7. LASIX [Concomitant]
  8. METOLAZONE [Concomitant]
  9. TOPROL-XL [Concomitant]
  10. FOSINOPRIL SODIUM [Concomitant]
  11. ALLOPURINOL [Concomitant]
  12. METFORMIN HCL [Concomitant]
  13. HYDROCODONE [Concomitant]
  14. CRESTOR [Concomitant]
  15. SPIRONOLACTONE [Concomitant]
  16. GLIPIZIDE [Concomitant]
  17. TRAZODONE HCL [Concomitant]
  18. TRAMADOL HCL [Concomitant]
  19. BACLOFEN [Concomitant]
  20. SULFAMETHOXAZOLE [Concomitant]
  21. AMOXICILLIN [Concomitant]
  22. WARFARIN [Concomitant]
  23. PROMETHAZINE [Concomitant]
  24. FOLIC ACID [Concomitant]
  25. VITAMIN B COMPLEX CAP [Concomitant]
  26. ALTACE [Concomitant]
  27. LEXAPRO [Concomitant]
  28. NEXIUM [Concomitant]
  29. AVELOX [Concomitant]
  30. PRAVASTATIN [Concomitant]
  31. THEOPHYLLINE [Concomitant]
  32. ACETYLCYSTEINE [Concomitant]
  33. GABAPENTIN [Concomitant]
  34. LIPITOR [Concomitant]
  35. SKELAXIN [Concomitant]
  36. POTASSIUM CHLORIDE [Concomitant]
  37. BIDEX [Concomitant]
  38. BENZONATATE [Concomitant]
  39. CELEBREX [Concomitant]

REACTIONS (7)
  - ANHEDONIA [None]
  - ECONOMIC PROBLEM [None]
  - GASTROOESOPHAGEAL REFLUX DISEASE [None]
  - INJURY [None]
  - MYOCARDIAL INFARCTION [None]
  - SURGERY [None]
  - UNEVALUABLE EVENT [None]
